FAERS Safety Report 17455707 (Version 1)
Quarter: 2020Q1

REPORT INFORMATION
  Report Type: Spontaneous
  Country: US (occurrence: US)
  Receive Date: 20200225
  Receipt Date: 20200225
  Transmission Date: 20200409
  Serious: Yes (Disabling)
  Sender: FDA-Public Use
  Company Number: None

PATIENT
  Age: 67 Year
  Sex: Female
  Weight: 157.5 kg

DRUGS (1)
  1. LEVOTHYROXINE SODIUM TABLETS, 150 MCG [Suspect]
     Active Substance: LEVOTHYROXINE SODIUM
     Indication: AUTOIMMUNE THYROIDITIS
     Dosage: ?          OTHER STRENGTH:MCG;QUANTITY:1 TABLET(S);?
     Route: 048
     Dates: start: 20191101, end: 20200225

REACTIONS (10)
  - Suspected product quality issue [None]
  - Fatigue [None]
  - Arthralgia [None]
  - Product substitution issue [None]
  - Weight increased [None]
  - Condition aggravated [None]
  - Lymphadenopathy [None]
  - Dry eye [None]
  - Product contamination physical [None]
  - Systemic immune activation [None]

NARRATIVE: CASE EVENT DATE: 20200225
